FAERS Safety Report 9144888 (Version 1)
Quarter: 2013Q1

REPORT INFORMATION
  Report Type: Spontaneous
  Country: FR (occurrence: FR)
  Receive Date: 20130307
  Receipt Date: 20130307
  Transmission Date: 20140127
  Serious: Yes (Death, Hospitalization)
  Sender: FDA-Public Use
  Company Number: FR-GE HEALTHCARE MEDICAL DIAGNOSTICS-OMPQ-NO-1302S-0135

PATIENT
  Age: 53 Year
  Sex: Female

DRUGS (4)
  1. OMNIPAQUE [Suspect]
     Indication: PULMONARY EMBOLISM
     Route: 042
     Dates: start: 20130108, end: 20130108
  2. OMNIPAQUE [Suspect]
     Indication: DIAGNOSTIC PROCEDURE
  3. SPIRIVA [Concomitant]
  4. SYMBICORT [Concomitant]

REACTIONS (4)
  - Encephalopathy [Fatal]
  - Cardiac arrest [Fatal]
  - Anaphylactic reaction [Fatal]
  - Bronchospasm [Fatal]
